FAERS Safety Report 7714755-1 (Version None)
Quarter: 2011Q3

REPORT INFORMATION
  Report Type: 
  Country: None (occurrence: None)
  Receive Date: 20110829
  Receipt Date: 20110820
  Transmission Date: 20111222
  Serious: Yes (Hospitalization)
  Sender: FDA-Public Use
  Company Number: JP-AMGEN-JPNSP2011035456

PATIENT
  Age: 62 Year
  Sex: Female
  Weight: 61 kg

DRUGS (8)
  1. ADAPTINOL [Concomitant]
     Indication: RETINAL DEGENERATION
     Route: 048
     Dates: start: 19971130
  2. VITAMEDIN [Concomitant]
     Indication: NEUROPATHY PERIPHERAL
     Dosage: UNCERTAINTY
     Route: 048
     Dates: start: 19971130
  3. FOSRENOL [Concomitant]
     Indication: HYPERPHOSPHATAEMIA
     Route: 048
     Dates: start: 20110301
  4. CINACALCET HYDROCHLORIDE [Suspect]
     Indication: HYPERPARATHYROIDISM
     Route: 048
     Dates: start: 20110624, end: 20110630
  5. RISUMIC [Concomitant]
     Indication: PROCEDURAL HYPOTENSION
     Route: 048
     Dates: start: 19990609
  6. CARNACULIN [Concomitant]
     Indication: RETINAL VASCULAR DISORDER
     Route: 048
     Dates: start: 19971130
  7. CINACALCET HYDROCHLORIDE [Suspect]
     Indication: HYPERPARATHYROIDISM SECONDARY
     Dosage: 25 MG/KG, QD
     Route: 048
     Dates: start: 20110624, end: 20110701
  8. ALLOPURINOL [Concomitant]
     Indication: HYPERTENSION
     Route: 048
     Dates: start: 19990609

REACTIONS (5)
  - GAMMA-GLUTAMYLTRANSFERASE INCREASED [None]
  - ASPARTATE AMINOTRANSFERASE INCREASED [None]
  - DECREASED APPETITE [None]
  - BLOOD LACTATE DEHYDROGENASE INCREASED [None]
  - ALANINE AMINOTRANSFERASE INCREASED [None]
